FAERS Safety Report 7288641-8 (Version None)
Quarter: 2011Q1

REPORT INFORMATION
  Report Type: 
  Country: None (occurrence: None)
  Receive Date: 20110211
  Receipt Date: 20110209
  Transmission Date: 20110831
  Serious: Yes (Hospitalization)
  Sender: FDA-Public Use
  Company Number: US-PFIZER INC-2011029490

PATIENT
  Sex: Male
  Weight: 84 kg

DRUGS (2)
  1. CHANTIX [Suspect]
     Indication: SMOKING CESSATION THERAPY
     Dosage: 0.5 MG, 1X/DAY
     Route: 048
     Dates: start: 20110101, end: 20110101
  2. CHANTIX [Suspect]
     Dosage: 1 MG, 2X/DAY
     Dates: start: 20110101, end: 20110205

REACTIONS (10)
  - NAUSEA [None]
  - SUICIDAL IDEATION [None]
  - VOMITING [None]
  - HOMICIDAL IDEATION [None]
  - DIARRHOEA [None]
  - ABDOMINAL PAIN UPPER [None]
  - ANGER [None]
  - TREMOR [None]
  - AGGRESSION [None]
  - MUSCLE TWITCHING [None]
